FAERS Safety Report 17994798 (Version 1)
Quarter: 2020Q3

REPORT INFORMATION
  Report Type: Spontaneous
  Country: CA (occurrence: CA)
  Receive Date: 20200708
  Receipt Date: 20200708
  Transmission Date: 20201103
  Serious: Yes (Life-Threatening)
  Sender: FDA-Public Use
  Company Number: CA-TEVA-2020-CA-1796883

PATIENT
  Age: 30 Year
  Sex: Female

DRUGS (3)
  1. NAPROXEN. [Suspect]
     Active Substance: NAPROXEN
  2. TYLENOL [Suspect]
     Active Substance: ACETAMINOPHEN
     Route: 065
  3. OXYTOCIN. [Suspect]
     Active Substance: OXYTOCIN

REACTIONS (3)
  - Pruritus [Unknown]
  - Lip swelling [Unknown]
  - Anaphylactic reaction [Unknown]
